FAERS Safety Report 21188774 (Version 3)
Quarter: 2022Q3

REPORT INFORMATION
  Report Type: Report from Study
  Country: DZ (occurrence: None)
  Receive Date: 20220809
  Receipt Date: 20220920
  Transmission Date: 20221027
  Serious: Yes (Hospitalization, Other)
  Sender: FDA-Public Use
  Company Number: DZ-Merck Healthcare KGaA-9288388

PATIENT
  Age: 27 Year
  Sex: Female

DRUGS (6)
  1. REBIF [Suspect]
     Active Substance: INTERFERON BETA-1A
     Indication: Multiple sclerosis
     Route: 058
     Dates: start: 20211116, end: 20220712
  2. REBIF [Suspect]
     Active Substance: INTERFERON BETA-1A
     Route: 058
     Dates: start: 20220717
  3. LEVOFLOXACIN [Concomitant]
     Active Substance: LEVOFLOXACIN
     Indication: Product used for unknown indication
  4. AMOCLAN [AMOXICILLIN;CLAVULANIC ACID] [Concomitant]
     Indication: Product used for unknown indication
  5. DOLIPRANE [Concomitant]
     Active Substance: ACETAMINOPHEN
     Indication: Product used for unknown indication
  6. ERGOCALCIFEROL [Concomitant]
     Active Substance: ERGOCALCIFEROL
     Indication: Product used for unknown indication

REACTIONS (9)
  - Anaemia of pregnancy [Recovering/Resolving]
  - Platelet count decreased [Unknown]
  - Premature delivery [Unknown]
  - Gestational diabetes [Recovering/Resolving]
  - Chills [Recovering/Resolving]
  - Product administration interrupted [Recovered/Resolved]
  - Live birth [Recovered/Resolved]
  - Breast feeding [Not Recovered/Not Resolved]
  - Maternal exposure during pregnancy [Recovered/Resolved]

NARRATIVE: CASE EVENT DATE: 20211101
